FAERS Safety Report 10397336 (Version 1)
Quarter: 2014Q3

REPORT INFORMATION
  Report Type: Spontaneous
  Country: FR (occurrence: FR)
  Receive Date: 20140820
  Receipt Date: 20140820
  Transmission Date: 20150326
  Serious: Yes (Hospitalization)
  Sender: FDA-Public Use
  Company Number: FR-ABBVIE-14P-056-1274214-00

PATIENT
  Age: 43 Year
  Sex: Female

DRUGS (3)
  1. MONONAXY (CLARITHROMYCIN) 500 MILLIGRAM) (CLARITHROMYCIN) [Suspect]
     Active Substance: CLARITHROMYCIN
     Indication: TRACHEITIS
     Route: 048
     Dates: start: 20100129, end: 20100202
  2. L-THYROXINE [Concomitant]
     Active Substance: LEVOTHYROXINE
     Indication: PRODUCT USED FOR UNKNOWN INDICATION
  3. BETAMETHASONE ARROW [Suspect]
     Active Substance: BETAMETHASONE
     Indication: TRACHEITIS
     Route: 048
     Dates: start: 20100129, end: 20100203

REACTIONS (2)
  - Tinnitus [None]
  - Visual impairment [Not Recovered/Not Resolved]

NARRATIVE: CASE EVENT DATE: 20100203
